FAERS Safety Report 18915850 (Version 1)
Quarter: 2021Q1

REPORT INFORMATION
  Report Type: Spontaneous
  Country: US (occurrence: US)
  Receive Date: 20210219
  Receipt Date: 20210219
  Transmission Date: 20210420
  Serious: Yes (Other)
  Sender: FDA-Public Use
  Company Number: None

PATIENT
  Age: 79 Year
  Sex: Male
  Weight: 106.65 kg

DRUGS (1)
  1. BAMLANIVIMAB. [Suspect]
     Active Substance: BAMLANIVIMAB
     Indication: COVID-19
     Dates: start: 20210206, end: 20210206

REACTIONS (4)
  - Amnesia [None]
  - Dysarthria [None]
  - Muscular weakness [None]
  - Asthenia [None]

NARRATIVE: CASE EVENT DATE: 20210206
